FAERS Safety Report 6040013-X (Version None)
Quarter: 2009Q1

REPORT INFORMATION
  Report Type: 
  Country: None (occurrence: None)
  Receive Date: 20090116
  Receipt Date: 20071115
  Transmission Date: 20090719
  Serious: No
  Sender: FDA-Public Use
  Company Number: US-BRISTOL-MYERS SQUIBB COMPANY-13983960

PATIENT
  Sex: Female

DRUGS (1)
  1. ABILIFY [Suspect]
     Indication: PARKINSON'S DISEASE
     Route: 048

REACTIONS (3)
  - AGITATION [None]
  - EMOTIONAL DISORDER [None]
  - MOVEMENT DISORDER [None]
